FAERS Safety Report 4279344-2 (Version None)
Quarter: 2004Q1

REPORT INFORMATION
  Report Type: 
  Country: None (occurrence: None)
  Receive Date: 20040126
  Receipt Date: 20040126
  Transmission Date: 20041129
  Serious: Yes (Other)
  Sender: FDA-Public Use
  Company Number: None

PATIENT
  Sex: Female
  Weight: 49.8957 kg

DRUGS (2)
  1. PAXIL CR [Suspect]
     Indication: ANXIETY DISORDER
     Dosage: 50 MG DAILY
     Dates: start: 20030115, end: 20040113
  2. PAXIL CR [Suspect]
     Indication: POST-TRAUMATIC STRESS DISORDER
     Dosage: 50 MG DAILY
     Dates: start: 20030115, end: 20040113

REACTIONS (29)
  - BRUXISM [None]
  - CHILLS [None]
  - CRYING [None]
  - DRUG WITHDRAWAL SYNDROME [None]
  - DRY MOUTH [None]
  - DYSPEPSIA [None]
  - EMOTIONAL DISORDER [None]
  - EPISTAXIS [None]
  - FALL [None]
  - FEELING ABNORMAL [None]
  - HEART RATE INCREASED [None]
  - HOT FLUSH [None]
  - HYPERACUSIS [None]
  - HYPOAESTHESIA [None]
  - IRRITABILITY [None]
  - KERATOCONJUNCTIVITIS SICCA [None]
  - MEMORY IMPAIRMENT [None]
  - MENSTRUAL DISORDER [None]
  - MUSCLE CRAMP [None]
  - MUSCLE TWITCHING [None]
  - NIGHTMARE [None]
  - PARAESTHESIA ORAL [None]
  - PHOTOPHOBIA [None]
  - RASH [None]
  - SEXUAL DYSFUNCTION [None]
  - STOMATITIS [None]
  - TINNITUS [None]
  - VISION BLURRED [None]
  - WEIGHT FLUCTUATION [None]
